FAERS Safety Report 17978811 (Version 1)
Quarter: 2020Q3

REPORT INFORMATION
  Report Type: Spontaneous
  Country: SE (occurrence: SE)
  Receive Date: 20200703
  Receipt Date: 20200703
  Transmission Date: 20201103
  Serious: Yes (Other)
  Sender: FDA-Public Use
  Company Number: SE-PFIZER INC-2020254936

PATIENT
  Age: 22 Year
  Sex: Female

DRUGS (3)
  1. CYTOTEC [Suspect]
     Active Substance: MISOPROSTOL
     Indication: ECTOPIC PREGNANCY
     Dosage: UNK
     Route: 048
     Dates: end: 20200104
  2. CYTOTEC [Suspect]
     Active Substance: MISOPROSTOL
     Indication: ABORTION
  3. CYTOTEC [Suspect]
     Active Substance: MISOPROSTOL
     Indication: BENIGN HYDATIDIFORM MOLE

REACTIONS (4)
  - Drug ineffective for unapproved indication [Unknown]
  - Blood loss anaemia [Unknown]
  - Off label use [Unknown]
  - Induced abortion haemorrhage [Unknown]

NARRATIVE: CASE EVENT DATE: 20200104
